FAERS Safety Report 9882678 (Version 1)
Quarter: 2014Q1

REPORT INFORMATION
  Report Type: Report from Study
  Country: JP (occurrence: JP)
  Receive Date: 20140207
  Receipt Date: 20140207
  Transmission Date: 20141002
  Serious: Yes (Death)
  Sender: FDA-Public Use
  Company Number: JP-009507513-1402JPN003136

PATIENT
  Age: 77 Year
  Sex: Female
  Weight: 41 kg

DRUGS (12)
  1. TEMOZOLOMIDE [Suspect]
     Indication: ANAPLASTIC ASTROCYTOMA
     Dosage: 75 MG/M2, QD
     Route: 041
     Dates: start: 20110111, end: 20110122
  2. PRODIF [Suspect]
     Indication: FUNGAL INFECTION
     Dosage: UNK
     Route: 041
     Dates: start: 20110124, end: 20110208
  3. VANCOMYCIN [Suspect]
     Indication: PNEUMONIA
     Dosage: UNK
     Route: 041
     Dates: start: 20110128, end: 20110131
  4. FUNGUARD [Suspect]
     Indication: FUNGAL INFECTION
     Dosage: UNK
     Route: 041
     Dates: start: 20110209, end: 20110215
  5. WARFARIN [Concomitant]
     Dosage: UNK
     Route: 048
     Dates: start: 20101213, end: 20110215
  6. CONIEL [Concomitant]
     Dosage: UNK
     Route: 048
     Dates: start: 20101116, end: 20110209
  7. CARDENALIN [Concomitant]
     Dosage: UNK
     Route: 048
     Dates: start: 20101116, end: 20110209
  8. TAKEPRON [Concomitant]
     Dosage: UNK
     Route: 048
     Dates: start: 20101116, end: 20110215
  9. PREDNISOLONE [Concomitant]
     Dosage: UNK
     Route: 048
     Dates: start: 20101122, end: 20110215
  10. MAGLAX (MAGNESIUM OXIDE) [Concomitant]
     Dosage: UNK
     Route: 048
     Dates: start: 20101215, end: 20110209
  11. NAVOBAN [Concomitant]
     Indication: PROPHYLAXIS
     Dosage: UNK
     Route: 048
     Dates: start: 20110111, end: 20110114
  12. FRUCTOSE (+) GLYCERIN [Concomitant]
     Dosage: UNK
     Route: 041
     Dates: start: 20100108, end: 20110206

REACTIONS (11)
  - Sepsis [Fatal]
  - Pyrexia [Fatal]
  - Pneumonia [Fatal]
  - Fungal infection [Fatal]
  - Dry skin [Recovered/Resolved]
  - Restlessness [Recovered/Resolved]
  - Hepatic function abnormal [Not Recovered/Not Resolved]
  - Anaemia [Not Recovered/Not Resolved]
  - Lymphocyte count decreased [Not Recovered/Not Resolved]
  - Platelet count decreased [Not Recovered/Not Resolved]
  - Shock [Fatal]
